FAERS Safety Report 6130102-3 (Version None)
Quarter: 2009Q1

REPORT INFORMATION
  Report Type: 
  Country: None (occurrence: None)
  Receive Date: 20090324
  Receipt Date: 20090311
  Transmission Date: 20090719
  Serious: Yes (Death, Hospitalization)
  Sender: FDA-Public Use
  Company Number: US-AMGEN-US328884

PATIENT
  Sex: Female

DRUGS (16)
  1. NPLATE [Suspect]
     Indication: IDIOPATHIC THROMBOCYTOPENIC PURPURA
     Route: 058
     Dates: start: 20081104, end: 20081223
  2. FOLIC ACID [Concomitant]
     Route: 048
  3. DECADRON [Concomitant]
     Route: 048
     Dates: start: 20080228, end: 20081212
  4. MULTI-VITAMINS [Concomitant]
     Route: 048
  5. ATIVAN [Concomitant]
     Route: 048
  6. VICODIN [Concomitant]
     Route: 065
  7. LOVENOX [Concomitant]
     Route: 058
     Dates: start: 20080101
  8. PROZAC [Concomitant]
     Route: 048
     Dates: start: 20030101
  9. PREVACID [Concomitant]
     Route: 048
     Dates: start: 20020101
  10. ALDACTONE [Concomitant]
     Route: 065
     Dates: start: 20060101
  11. BENADRYL [Concomitant]
     Route: 048
     Dates: start: 20080223
  12. GEMZAR [Concomitant]
     Route: 042
     Dates: start: 20080522, end: 20081212
  13. SODIUM CHLORIDE [Concomitant]
  14. ZOFRAN [Concomitant]
     Route: 048
     Dates: start: 20080228, end: 20081212
  15. CARBOPLATIN [Concomitant]
     Route: 042
     Dates: start: 20080228, end: 20080819
  16. REMICADE [Concomitant]
     Route: 042
     Dates: start: 19980101, end: 20081118

REACTIONS (5)
  - ANAEMIA [None]
  - MALIGNANT NEOPLASM PROGRESSION [None]
  - RENAL FAILURE [None]
  - THROMBOCYTOPENIA [None]
  - TUMOUR EMBOLISM [None]
